FAERS Safety Report 16711235 (Version 3)
Quarter: 2023Q4

REPORT INFORMATION
  Report Type: Spontaneous
  Country: FR (occurrence: FR)
  Receive Date: 20190816
  Receipt Date: 20231101
  Transmission Date: 20240109
  Serious: Yes (Hospitalization, Other)
  Sender: FDA-Public Use
  Company Number: PHHY2019FR188723

PATIENT
  Age: 69 Year
  Sex: Female
  Weight: 63 kg

DRUGS (23)
  1. VALSARTAN [Suspect]
     Active Substance: VALSARTAN
     Indication: Hypertension
     Dosage: 80 MG, QD
     Route: 048
  2. PREDNISOLONE [Suspect]
     Active Substance: PREDNISOLONE
     Indication: Rheumatoid arthritis
     Dosage: 5 MG, QD
     Route: 065
     Dates: start: 2006
  3. DAFALGAN [Suspect]
     Active Substance: ACETAMINOPHEN
     Indication: Rheumatoid arthritis
     Dosage: 3 DOSAGE FORM, QD
     Route: 048
  4. DAFALGAN [Suspect]
     Active Substance: ACETAMINOPHEN
     Dosage: UNK, TID (Q8H)
     Route: 048
  5. METHOTREXATE [Suspect]
     Active Substance: METHOTREXATE
     Indication: Rheumatoid arthritis
     Dosage: UNK
     Route: 065
     Dates: start: 1995, end: 2001
  6. ARAVA [Suspect]
     Active Substance: LEFLUNOMIDE
     Indication: Rheumatoid arthritis
     Dosage: 20 MG, QD
     Route: 048
     Dates: start: 2006
  7. ARAVA [Suspect]
     Active Substance: LEFLUNOMIDE
     Dosage: 1 DOSAGE FORM, QD
     Route: 048
  8. PREDNISONE [Suspect]
     Active Substance: PREDNISONE
     Indication: Rheumatoid arthritis
     Dosage: 5 MG, QD
     Route: 048
  9. PREDNISONE [Suspect]
     Active Substance: PREDNISONE
     Indication: Polyarthritis
  10. ESTRADIOL [Suspect]
     Active Substance: ESTRADIOL
     Indication: Oestrogen replacement therapy
     Dosage: UNK, QW
     Route: 062
  11. ESTRADIOL [Suspect]
     Active Substance: ESTRADIOL
     Dosage: 25 UG, BIW (1.775 MICROGRAM DAILY; 25 UG, EVERY 2WK)
     Route: 062
  12. MABTHERA [Suspect]
     Active Substance: RITUXIMAB
     Indication: Rheumatoid arthritis
     Dosage: 1000 MG, Q2W
     Route: 042
     Dates: start: 201007, end: 20100722
  13. MABTHERA [Suspect]
     Active Substance: RITUXIMAB
     Indication: Polyarthritis
  14. CALCIUM CARBONATE\CHOLECALCIFEROL [Suspect]
     Active Substance: CALCIUM CARBONATE\CHOLECALCIFEROL
     Indication: Product used for unknown indication
     Dosage: 1 DOSAGE FORM, QD
     Route: 048
  15. VITAMIN D3 [Suspect]
     Active Substance: CHOLECALCIFEROL
     Indication: Product used for unknown indication
     Dosage: UNK 0.25 [IU]/1
     Route: 065
  16. ACTONEL [Suspect]
     Active Substance: RISEDRONATE SODIUM
     Indication: Osteoporosis
     Dosage: 5 MG, QD
     Route: 048
     Dates: start: 200611, end: 200801
  17. ACTONEL [Suspect]
     Active Substance: RISEDRONATE SODIUM
     Dosage: UNK
     Route: 048
     Dates: start: 2006, end: 2009
  18. VALSARTAN [Concomitant]
     Active Substance: VALSARTAN
     Indication: Product used for unknown indication
     Dosage: UNK
     Route: 065
  19. INFLIXIMAB [Concomitant]
     Active Substance: INFLIXIMAB
     Indication: Product used for unknown indication
     Dosage: UNK
     Route: 065
  20. OFLOXACIN [Concomitant]
     Active Substance: OFLOXACIN
     Indication: Product used for unknown indication
     Dosage: 400 MG, QD
     Route: 048
     Dates: start: 20100820, end: 20100823
  21. HYDROXYCHLOROQUINE [Concomitant]
     Active Substance: HYDROXYCHLOROQUINE
     Indication: Product used for unknown indication
     Dosage: UNK
     Route: 065
     Dates: start: 1992, end: 1995
  22. CALCIUM CARBONATE\CHOLECALCIFEROL [Concomitant]
     Active Substance: CALCIUM CARBONATE\CHOLECALCIFEROL
     Indication: Product used for unknown indication
     Dosage: UNK
     Route: 065
  23. VALACYCLOVIR HYDROCHLORIDE [Concomitant]
     Active Substance: VALACYCLOVIR HYDROCHLORIDE
     Indication: Oral herpes
     Dosage: 500 MG, BID
     Route: 048
     Dates: start: 20100820, end: 20100827

REACTIONS (11)
  - Osteonecrosis of jaw [Unknown]
  - Acute kidney injury [Unknown]
  - Herpes simplex [Unknown]
  - Gastroenteritis [Unknown]
  - Oral herpes [Recovered/Resolved]
  - Periodontal disease [Unknown]
  - Periodontitis [Unknown]
  - Pain in jaw [Unknown]
  - Gingival ulceration [Unknown]
  - Oral pain [Unknown]
  - Necrosis [Unknown]

NARRATIVE: CASE EVENT DATE: 20100722
